FAERS Safety Report 14238225 (Version 1)
Quarter: 2017Q4

REPORT INFORMATION
  Report Type: Spontaneous
  Country: FR (occurrence: FR)
  Receive Date: 20171130
  Receipt Date: 20171130
  Transmission Date: 20180321
  Serious: Yes (Other)
  Sender: FDA-Public Use
  Company Number: FR-MERCK KGAA-2036363

PATIENT
  Sex: Male

DRUGS (1)
  1. NOVOTHYROX [Suspect]
     Active Substance: LEVOTHYROXINE SODIUM
     Indication: HYPOTHYROIDISM

REACTIONS (9)
  - Anger [Recovered/Resolved]
  - Headache [Recovered/Resolved]
  - Blood thyroid stimulating hormone increased [Recovered/Resolved]
  - Aggression [Recovered/Resolved]
  - Negative thoughts [Recovered/Resolved]
  - Depressed mood [Recovered/Resolved]
  - Sleep disorder [Recovered/Resolved]
  - Arthralgia [Recovered/Resolved]
  - Fatigue [Recovered/Resolved]

NARRATIVE: CASE EVENT DATE: 201709
